FAERS Safety Report 6163751-7 (Version None)
Quarter: 2009Q2

REPORT INFORMATION
  Report Type: 
  Country: None (occurrence: None)
  Receive Date: 20090422
  Receipt Date: 20090304
  Transmission Date: 20091009
  Serious: No
  Sender: FDA-Public Use
  Company Number: GB-BAYER-200918328GPV

PATIENT
  Age: 50 Year
  Sex: Male

DRUGS (3)
  1. ALEVE [Suspect]
     Indication: DRUG USE FOR UNKNOWN INDICATION
     Route: 065
  2. BONIVA [Suspect]
     Indication: OSTEOPENIA
     Route: 065
     Dates: start: 20080901, end: 20081015
  3. MOTRIN [Suspect]
     Indication: DRUG USE FOR UNKNOWN INDICATION
     Route: 065

REACTIONS (2)
  - GASTRIC DISORDER [None]
  - UNEVALUABLE EVENT [None]
